FAERS Safety Report 8848703 (Version 2)
Quarter: 2013Q1

REPORT INFORMATION
  Report Type: Spontaneous
  Country: DK (occurrence: None)
  Receive Date: 20121015
  Receipt Date: 20130125
  Transmission Date: 20140127
  Serious: Yes (Life-Threatening, Hospitalization, Disabling, Other)
  Sender: FDA-Public Use
  Company Number: 2012MA012152

PATIENT
  Age: 36 Year
  Sex: Female

DRUGS (1)
  1. CITALOPRAM HYDROBROMIDE [Suspect]
     Dosage: 40  MG;UNK:PO
     Dates: start: 20080510, end: 20110403

REACTIONS (6)
  - Bipolar disorder [None]
  - Social phobia [None]
  - Alcoholism [None]
  - Mania [None]
  - Depression [None]
  - Family stress [None]
